FAERS Safety Report 8138890-1 (Version None)
Quarter: 2012Q1

REPORT INFORMATION
  Report Type: 
  Country: None (occurrence: None)
  Receive Date: 20120215
  Receipt Date: 20120206
  Transmission Date: 20120608
  Serious: Yes (Hospitalization, Disabling, Other)
  Sender: FDA-Public Use
  Company Number: FR-ELI_LILLY_AND_COMPANY-FR201202001449

PATIENT
  Sex: Female
  Weight: 67 kg

DRUGS (3)
  1. ELOXATIN [Concomitant]
     Indication: LUNG CARCINOMA CELL TYPE UNSPECIFIED STAGE IV
     Dosage: 150 MG, EVERY 2 WEEKS
     Route: 042
     Dates: start: 20111006, end: 20111020
  2. AVASTIN [Concomitant]
     Indication: LUNG CARCINOMA CELL TYPE UNSPECIFIED STAGE IV
     Dosage: 337 MG, EVERY 2 WEEKS
     Route: 042
     Dates: start: 20111006, end: 20111020
  3. GEMZAR [Suspect]
     Indication: LUNG CARCINOMA CELL TYPE UNSPECIFIED STAGE IV
     Dosage: 1760 MG, EVERY 2 WEEKS
     Route: 042
     Dates: start: 20111006, end: 20111020

REACTIONS (6)
  - CEREBRAL ISCHAEMIA [None]
  - MUSCULAR WEAKNESS [None]
  - BLOOD CREATININE INCREASED [None]
  - FATIGUE [None]
  - CEREBRAL SMALL VESSEL ISCHAEMIC DISEASE [None]
  - FALL [None]
